FAERS Safety Report 7480350-5 (Version None)
Quarter: 2011Q2

REPORT INFORMATION
  Report Type: 
  Country: None (occurrence: None)
  Receive Date: 20110504
  Receipt Date: 20110425
  Transmission Date: 20111010
  Serious: Yes (Hospitalization, Other)
  Sender: FDA-Public Use
  Company Number: TPA2011A01191

PATIENT
  Age: 76 Year
  Sex: Male
  Weight: 86.1834 kg

DRUGS (5)
  1. AVANDAMET [Suspect]
  2. ACTOS [Suspect]
     Indication: DIABETES MELLITUS
     Dosage: 30, 15 MG, 1 IN 1 D, ORAL
     Route: 048
     Dates: start: 20040914, end: 20090401
  3. ACTOS [Suspect]
     Indication: DIABETES MELLITUS
     Dosage: 30, 15 MG, 1 IN 1 D, ORAL
     Route: 048
     Dates: end: 20110315
  4. ACTOS [Suspect]
     Indication: DIABETES MELLITUS
     Dosage: 30, 15 MG, 1 IN 1 D, ORAL
     Route: 048
     Dates: start: 20090409
  5. AVANDIA [Concomitant]

REACTIONS (3)
  - JOINT SWELLING [None]
  - BLADDER CANCER [None]
  - URETERIC CANCER [None]
